FAERS Safety Report 15289646 (Version 2)
Quarter: 2018Q3

REPORT INFORMATION
  Report Type: Spontaneous
  Country: MX (occurrence: MX)
  Receive Date: 20180817
  Receipt Date: 20180817
  Transmission Date: 20181010
  Serious: Yes (Other)
  Sender: FDA-Public Use
  Company Number: MX-PFIZER INC-2018330276

PATIENT
  Sex: Female

DRUGS (2)
  1. LETROZOLE. [Concomitant]
     Active Substance: LETROZOLE
     Dosage: UNK
  2. IBRANCE [Suspect]
     Active Substance: PALBOCICLIB
     Dosage: 125 MG, DAILY BY 21 DAYS
     Dates: start: 201708, end: 201808

REACTIONS (1)
  - Pericardial effusion [Unknown]
